FAERS Safety Report 4687425-4 (Version None)
Quarter: 2005Q2

REPORT INFORMATION
  Report Type: 
  Country: None (occurrence: None)
  Receive Date: 20050609
  Receipt Date: 20050609
  Transmission Date: 20051028
  Serious: Yes (Other)
  Sender: FDA-Public Use
  Company Number: None

PATIENT
  Sex: Female
  Weight: 86.3 kg

DRUGS (2)
  1. CISPLATIN [Suspect]
     Indication: NEOPLASM MALIGNANT
     Dosage: 100 MG/M2 ON DAYS 1, 22, AND 43
     Dates: start: 20050421
  2. RADIATION [Suspect]
     Indication: NEOPLASM MALIGNANT
     Dosage: 70 GY/25 FRACTIONS/7 WEEKS
     Dates: start: 20050421

REACTIONS (13)
  - COUGH [None]
  - DEHYDRATION [None]
  - DIARRHOEA [None]
  - DYSPHAGIA [None]
  - DYSURIA [None]
  - ERYTHEMA [None]
  - FATIGUE [None]
  - INFLUENZA LIKE ILLNESS [None]
  - MUCOSAL INFLAMMATION [None]
  - POST PROCEDURAL NAUSEA [None]
  - POST PROCEDURAL VOMITING [None]
  - PYREXIA [None]
  - RADIATION INJURY [None]
